FAERS Safety Report 24964156 (Version 2)
Quarter: 2025Q1

REPORT INFORMATION
  Report Type: Report from Study
  Country: US (occurrence: US)
  Receive Date: 20250213
  Receipt Date: 20250225
  Transmission Date: 20250409
  Serious: Yes (Hospitalization)
  Sender: TEVA
  Company Number: US-TEVA-VS-3295289

PATIENT

DRUGS (2)
  1. PRIMIDONE [Interacting]
     Active Substance: PRIMIDONE
     Indication: Product used for unknown indication
     Route: 065
  2. APIXABAN [Interacting]
     Active Substance: APIXABAN
     Indication: Anticoagulant therapy
     Route: 048

REACTIONS (2)
  - Drug interaction [Unknown]
  - Anticoagulation drug level decreased [Unknown]
